FAERS Safety Report 10754821 (Version 1)
Quarter: 2015Q1

REPORT INFORMATION
  Report Type: Spontaneous
  Country: ES (occurrence: ES)
  Receive Date: 20150202
  Receipt Date: 20150202
  Transmission Date: 20150721
  Serious: Yes (Death, Hospitalization)
  Sender: FDA-Public Use
  Company Number: ES-CELGENE-ESP-2015013112

PATIENT
  Age: 56 Year
  Sex: Female

DRUGS (2)
  1. ABRAXANE [Suspect]
     Active Substance: PACLITAXEL
     Indication: BREAST CANCER
     Route: 050
     Dates: start: 20100707, end: 201012
  2. ABRAXANE [Suspect]
     Active Substance: PACLITAXEL
     Route: 050
     Dates: start: 201003

REACTIONS (3)
  - Breast cancer metastatic [Unknown]
  - Breast cancer metastatic [Fatal]
  - Haematotoxicity [Unknown]

NARRATIVE: CASE EVENT DATE: 201012
